FAERS Safety Report 4626019-3 (Version None)
Quarter: 2005Q2

REPORT INFORMATION
  Report Type: 
  Country: None (occurrence: None)
  Receive Date: 20050404
  Receipt Date: 20050328
  Transmission Date: 20051028
  Serious: Yes (Hospitalization)
  Sender: FDA-Public Use
  Company Number: US-JNJFOC-20050106168

PATIENT
  Age: 58 Year
  Sex: Male
  Weight: 93.44 kg

DRUGS (5)
  1. DURAGESIC-100 [Suspect]
     Route: 062
     Dates: start: 20020101, end: 20050117
  2. VICODIN [Concomitant]
     Route: 049
  3. VICODIN [Concomitant]
     Indication: PAIN
     Route: 049
  4. VALIUM [Concomitant]
     Indication: ANXIETY
     Route: 049
  5. SKELAXIN [Concomitant]
     Route: 049

REACTIONS (13)
  - APPLICATION SITE IRRITATION [None]
  - APPLICATION SITE PAIN [None]
  - COLD SWEAT [None]
  - DYSGEUSIA [None]
  - FEELING COLD [None]
  - HOT FLUSH [None]
  - HYPERHIDROSIS [None]
  - MEDICATION ERROR [None]
  - NAUSEA [None]
  - OVERDOSE [None]
  - RETCHING [None]
  - RHINORRHOEA [None]
  - VOMITING [None]
